FAERS Safety Report 15852735 (Version 1)
Quarter: 2019Q1

REPORT INFORMATION
  Report Type: Spontaneous
  Country: CA (occurrence: CA)
  Receive Date: 20190122
  Receipt Date: 20190122
  Transmission Date: 20190417
  Serious: Yes (Other)
  Sender: FDA-Public Use
  Company Number: CA-ROCHE-2248198

PATIENT
  Sex: Female

DRUGS (1)
  1. ALECENSARO [Suspect]
     Active Substance: ALECTINIB
     Indication: NON-HODGKIN^S LYMPHOMA
     Route: 065

REACTIONS (1)
  - Metastases to meninges [Unknown]
